FAERS Safety Report 12442396 (Version 1)
Quarter: 2016Q2

REPORT INFORMATION
  Report Type: Spontaneous
  Country: US (occurrence: None)
  Receive Date: 20160606
  Receipt Date: 20160606
  Transmission Date: 20160815
  Serious: No
  Sender: FDA-Public Use
  Company Number: None

PATIENT
  Age: 67 Year
  Sex: Male

DRUGS (1)
  1. IMATINIB 400MG SPS [Suspect]
     Active Substance: IMATINIB
     Indication: PRODUCT USED FOR UNKNOWN INDICATION
     Route: 048
     Dates: start: 20150817, end: 20160321

REACTIONS (3)
  - Gait disturbance [None]
  - Pain in extremity [None]
  - Asthenia [None]

NARRATIVE: CASE EVENT DATE: 20160321
